FAERS Safety Report 7111956-0 (Version None)
Quarter: 2010Q4

REPORT INFORMATION
  Report Type: 
  Country: None (occurrence: None)
  Receive Date: 20101119
  Receipt Date: 20101108
  Transmission Date: 20110411
  Serious: Yes (Hospitalization)
  Sender: FDA-Public Use
  Company Number: DE-JNJFOC-20101101915

PATIENT
  Age: 27 Year
  Sex: Female
  Weight: 124.5 kg

DRUGS (10)
  1. RISPERDAL [Suspect]
     Indication: ILL-DEFINED DISORDER
     Route: 048
     Dates: start: 20100201, end: 20100901
  2. RISPERDAL [Suspect]
     Dosage: 5 TO 1 MG
     Route: 048
     Dates: start: 20100201, end: 20100901
  3. SEROQUEL [Suspect]
     Indication: ILL-DEFINED DISORDER
     Route: 048
     Dates: start: 20100201
  4. SEROQUEL [Suspect]
     Route: 048
     Dates: start: 20100201
  5. SEROQUEL [Suspect]
     Route: 048
     Dates: start: 20100201
  6. VENLAFAXINE HCL [Suspect]
     Indication: ILL-DEFINED DISORDER
     Route: 048
     Dates: start: 20090101
  7. ORFIRIL [Concomitant]
     Route: 048
     Dates: start: 20090101
  8. DELIX [Concomitant]
     Route: 048
  9. METOPROLOL [Concomitant]
     Route: 048
  10. PANTOPRAZOLE SODIUM [Concomitant]
     Route: 048

REACTIONS (4)
  - AMENORRHOEA [None]
  - BLOOD PROLACTIN INCREASED [None]
  - GALACTORRHOEA [None]
  - MENTAL DISORDER [None]
